FAERS Safety Report 8151624-X (Version None)
Quarter: 2012Q1

REPORT INFORMATION
  Report Type: 
  Country: None (occurrence: None)
  Receive Date: 20120220
  Receipt Date: 20120216
  Transmission Date: 20120608
  Serious: Yes (Hospitalization, Other)
  Sender: FDA-Public Use
  Company Number: JP-ABBOTT-11P-087-0887207-00

PATIENT
  Sex: Female
  Weight: 54 kg

DRUGS (8)
  1. PYRIDOXAL PHOSPHATE HYDRATE [Concomitant]
     Indication: RHEUMATOID ARTHRITIS
     Dates: start: 20110722, end: 20111125
  2. ISONIAZID [Suspect]
     Indication: RHEUMATOID ARTHRITIS
     Dates: start: 20110722, end: 20111125
  3. PREDNISOLONE [Concomitant]
     Dates: end: 20111118
  4. FOLIC ACID [Concomitant]
     Indication: RHEUMATOID ARTHRITIS
     Dates: start: 20100827, end: 20111105
  5. HUMIRA [Suspect]
     Indication: RHEUMATOID ARTHRITIS
     Route: 058
     Dates: start: 20110812, end: 20110826
  6. HUMIRA [Suspect]
     Dates: start: 20110924, end: 20111104
  7. RHEUMATREX [Suspect]
     Indication: RHEUMATOID ARTHRITIS
     Dosage: THREE TIMES A WEEK, 2 TO 4 MG PER WEEK
     Dates: start: 20100827, end: 20111105
  8. PREDNISOLONE [Concomitant]
     Indication: RHEUMATOID ARTHRITIS
     Dosage: 5 MG DAILY
     Dates: start: 20100428

REACTIONS (4)
  - HEPATIC FUNCTION ABNORMAL [None]
  - MUSCULAR WEAKNESS [None]
  - GASTROENTERITIS [None]
  - HYPOAESTHESIA [None]
